FAERS Safety Report 5381305-7 (Version None)
Quarter: 2007Q2

REPORT INFORMATION
  Report Type: 
  Country: None (occurrence: None)
  Receive Date: 20070629
  Receipt Date: 20070423
  Transmission Date: 20071010
  Serious: Yes (Hospitalization)
  Sender: FDA-Public Use
  Company Number: TPA2007A00862

PATIENT

DRUGS (1)
  1. ACTOPLUS MET [Suspect]
     Dosage: PER ORAL
     Route: 048
     Dates: start: 20070401

REACTIONS (1)
  - CARDIAC FAILURE CONGESTIVE [None]
